FAERS Safety Report 4422317-7 (Version None)
Quarter: 2004Q3

REPORT INFORMATION
  Report Type: 
  Country: None (occurrence: None)
  Receive Date: 20040810
  Receipt Date: 20040424
  Transmission Date: 20050211
  Serious: Yes (Congenital Anomaly)
  Sender: FDA-Public Use
  Company Number: GB-GLAXOSMITHKLINE-B0331192A

PATIENT
  Sex: Male

DRUGS (2)
  1. LAMOTRIGINE [Suspect]
     Indication: EPILEPSY
     Dosage: 150MG PER DAY
  2. VALPROIC ACID [Suspect]
     Indication: EPILEPSY
     Dosage: 2G PER DAY

REACTIONS (2)
  - APLASIA CUTIS CONGENITA [None]
  - DRUG EXPOSURE DURING PREGNANCY [None]
